FAERS Safety Report 21283205 (Version 2)
Quarter: 2022Q3

REPORT INFORMATION
  Report Type: Report from Study
  Country: US (occurrence: US)
  Receive Date: 20220901
  Receipt Date: 20220914
  Transmission Date: 20221027
  Serious: Yes (Other)
  Sender: FDA-Public Use
  Company Number: US-TAKEDA-2022TUS060002

PATIENT
  Age: 63 Year
  Sex: Female

DRUGS (11)
  1. LANADELUMAB [Suspect]
     Active Substance: LANADELUMAB
     Indication: Hereditary angioedema
     Dosage: 300 MILLIGRAM, Q2WEEKS
     Route: 065
     Dates: start: 2018, end: 202008
  2. HYDROCHLOROTHIAZIDE [Concomitant]
     Active Substance: HYDROCHLOROTHIAZIDE
     Indication: Hypertension
     Dosage: 12.5 MILLIGRAM
     Route: 048
     Dates: start: 2013
  3. PROBIOTICS NOS [Concomitant]
     Active Substance: PROBIOTICS NOS
     Indication: Prophylaxis
     Dosage: 275 MILLIGRAM
     Route: 048
     Dates: start: 2018
  4. POTASSIUM [Concomitant]
     Active Substance: POTASSIUM
     Indication: Hypokalaemia
     Dosage: 550 MILLIGRAM
     Route: 048
     Dates: start: 202002
  5. FOSAMAX [Concomitant]
     Active Substance: ALENDRONATE SODIUM
     Dosage: 70 MILLIGRAM
     Route: 048
     Dates: start: 202002
  6. VITAMIN D3 [Concomitant]
     Active Substance: CHOLECALCIFEROL
     Indication: Vitamin supplementation
     Dosage: 5000 INTERNATIONAL UNIT
     Route: 048
     Dates: start: 2018
  7. EPINEPHRINE [Concomitant]
     Active Substance: EPINEPHRINE
     Indication: Salvage therapy
     Dosage: 0.3 MILLIGRAM
     Route: 030
     Dates: start: 20200811
  8. BENADRYL [Concomitant]
     Active Substance: DIPHENHYDRAMINE HYDROCHLORIDE
     Indication: Prophylaxis
     Dosage: 25 MILLIGRAM
     Route: 048
     Dates: start: 202010, end: 202011
  9. BENADRYL [Concomitant]
     Active Substance: DIPHENHYDRAMINE HYDROCHLORIDE
     Indication: Injection site reaction
     Dosage: 25 MILLIGRAM
     Route: 048
     Dates: start: 20220303, end: 20220303
  10. BENADRYL [Concomitant]
     Active Substance: DIPHENHYDRAMINE HYDROCHLORIDE
     Indication: Pruritus
  11. BIOTIN [Concomitant]
     Active Substance: BIOTIN
     Indication: Vitamin supplementation
     Dosage: 1000 MILLIGRAM
     Route: 048
     Dates: start: 2018

REACTIONS (2)
  - Barrett^s oesophagus [Not Recovered/Not Resolved]
  - Otitis media [Recovered/Resolved]

NARRATIVE: CASE EVENT DATE: 20220610
